FAERS Safety Report 16088526 (Version 1)
Quarter: 2019Q1

REPORT INFORMATION
  Report Type: Spontaneous
  Country: US (occurrence: US)
  Receive Date: 20190319
  Receipt Date: 20190319
  Transmission Date: 20190418
  Serious: No
  Sender: FDA-Public Use
  Company Number: US-PFIZER INC-2019107431

PATIENT
  Age: 63 Year
  Sex: Female

DRUGS (2)
  1. TOVIAZ [Suspect]
     Active Substance: FESOTERODINE FUMARATE
     Dosage: TAKES 8MG ONE DAY AND 4MG THE OTHER DAY
  2. TOVIAZ [Suspect]
     Active Substance: FESOTERODINE FUMARATE
     Dosage: TAKES 8MG ONE DAY AND 4MG THE OTHER DAY

REACTIONS (4)
  - Dry mouth [Unknown]
  - Blood urea increased [Unknown]
  - Dysphonia [Unknown]
  - Blood creatinine increased [Unknown]
